FAERS Safety Report 16201509 (Version 1)
Quarter: 2019Q2

REPORT INFORMATION
  Report Type: Spontaneous
  Country: US (occurrence: US)
  Receive Date: 20190415
  Receipt Date: 20190415
  Transmission Date: 20190711
  Serious: Yes (Other)
  Sender: FDA-Public Use
  Company Number: None

PATIENT
  Age: 78 Year
  Sex: Male
  Weight: 63.45 kg

DRUGS (6)
  1. FUROSEMIDE. [Concomitant]
     Active Substance: FUROSEMIDE
  2. SUTENT [Suspect]
     Active Substance: SUNITINIB MALATE
     Indication: SOFT TISSUE NEOPLASM
     Route: 048
     Dates: start: 20180706, end: 20190415
  3. CARVEDILOL. [Concomitant]
     Active Substance: CARVEDILOL
  4. PREDNISONE. [Concomitant]
     Active Substance: PREDNISONE
  5. FLOVENT HFA [Concomitant]
     Active Substance: FLUTICASONE PROPIONATE
  6. SUTENT [Suspect]
     Active Substance: SUNITINIB MALATE
     Indication: CONNECTIVE TISSUE NEOPLASM
     Route: 048
     Dates: start: 20180706, end: 20190415

REACTIONS (1)
  - Hospice care [None]

NARRATIVE: CASE EVENT DATE: 20190415
